FAERS Safety Report 4723610-0 (Version None)
Quarter: 2005Q3

REPORT INFORMATION
  Report Type: 
  Country: None (occurrence: None)
  Receive Date: 20050725
  Receipt Date: 20050526
  Transmission Date: 20060218
  Serious: Yes (Life-Threatening, Hospitalization)
  Sender: FDA-Public Use
  Company Number: US-AMGEN-US135866

PATIENT
  Sex: Female
  Weight: 62.6 kg

DRUGS (1)
  1. NEUPOGEN [Suspect]
     Indication: NEUTROPENIA
     Route: 058
     Dates: start: 19910131

REACTIONS (7)
  - ABDOMINAL PAIN [None]
  - BACK PAIN [None]
  - CARDIAC ARREST [None]
  - FEBRILE NEUTROPENIA [None]
  - SEPTIC SHOCK [None]
  - SINUSITIS [None]
  - VOMITING [None]
